FAERS Safety Report 8910995 (Version 4)
Quarter: 2013Q3

REPORT INFORMATION
  Report Type: Spontaneous
  Country: US (occurrence: US)
  Receive Date: 20121115
  Receipt Date: 20130712
  Transmission Date: 20140515
  Serious: Yes (Hospitalization, Other)
  Sender: FDA-Public Use
  Company Number: US-009507513-1211USA005964

PATIENT
  Sex: Female
  Weight: 61 kg

DRUGS (9)
  1. FOSAMAX [Suspect]
     Indication: OSTEOPOROSIS PROPHYLAXIS
     Dosage: 70 MG, UNK
     Route: 048
     Dates: start: 20030506, end: 20051223
  2. BONIVA [Suspect]
     Indication: OSTEOPOROSIS PROPHYLAXIS
     Dosage: 150 MG, UNK
     Route: 048
     Dates: start: 20060103, end: 20101129
  3. HORMONES (UNSPECIFIED) [Concomitant]
     Dosage: UNK
     Dates: start: 20030423, end: 20110417
  4. OXYBUTYNIN [Concomitant]
     Dosage: UNK
     Dates: start: 20030307, end: 20111010
  5. ALLEGRA [Concomitant]
     Dosage: UNK
     Dates: start: 20030408, end: 20070827
  6. DIOVAN [Concomitant]
     Dosage: UNK
     Dates: start: 20020831, end: 20110604
  7. HYDROCHLOROTHIAZIDE [Concomitant]
     Dosage: UNK
     Dates: start: 20010830, end: 20040730
  8. AZITHROMYCIN [Concomitant]
     Dosage: UNK
     Dates: start: 20011205, end: 20111227
  9. ALBUTEROL [Concomitant]
     Dosage: UNK
     Dates: start: 20020208, end: 20061205

REACTIONS (88)
  - Femur fracture [Unknown]
  - Open reduction of fracture [Unknown]
  - Open reduction of fracture [Unknown]
  - Comminuted fracture [Unknown]
  - Medical device removal [Unknown]
  - Acute respiratory failure [Unknown]
  - Renal surgery [Unknown]
  - Renal failure [Unknown]
  - Renal failure acute [Unknown]
  - Cerebral infarction [Unknown]
  - Anaemia [Unknown]
  - Rib fracture [Unknown]
  - Lobar pneumonia [Unknown]
  - Cardiac pacemaker insertion [Unknown]
  - Mastoid operation [Unknown]
  - Cardiac failure congestive [Recovered/Resolved]
  - Cardiac failure congestive [Not Recovered/Not Resolved]
  - Renal tubular necrosis [Unknown]
  - Urinary tract infection [Unknown]
  - Hypotension [Unknown]
  - Procedural hypotension [Unknown]
  - Post procedural haemorrhage [Unknown]
  - Hypertension [Unknown]
  - Hypertension [Unknown]
  - Brain natriuretic peptide increased [Unknown]
  - Hyponatraemia [Unknown]
  - Crepitations [Unknown]
  - Pneumonia [Unknown]
  - Asthma [Unknown]
  - Fracture nonunion [Unknown]
  - Nephrolithiasis [Unknown]
  - Hypercholesterolaemia [Unknown]
  - Rheumatoid arthritis [Not Recovered/Not Resolved]
  - Oophorectomy bilateral [Unknown]
  - Bradycardia [Unknown]
  - Hysterectomy [Unknown]
  - Dyspnoea [Unknown]
  - Dysuria [Unknown]
  - Flat affect [Unknown]
  - Blood disorder [Unknown]
  - Pulmonary mass [Unknown]
  - Fall [Unknown]
  - Low turnover osteopathy [Unknown]
  - Contusion [Unknown]
  - Antinuclear antibody positive [Unknown]
  - Interstitial lung disease [Unknown]
  - Rib fracture [Unknown]
  - Bronchiolitis [Unknown]
  - Sinusitis [Unknown]
  - Tympanic membrane scarring [Unknown]
  - Mycobacterium avium complex infection [Unknown]
  - Intervertebral disc degeneration [Not Recovered/Not Resolved]
  - Osteoarthritis [Unknown]
  - Osteoporosis postmenopausal [Unknown]
  - Normal pressure hydrocephalus [Unknown]
  - Peripheral vascular disorder [Unknown]
  - Adverse event [Unknown]
  - Transient ischaemic attack [Unknown]
  - Transient ischaemic attack [Unknown]
  - Depression [Unknown]
  - Diverticulum intestinal [Unknown]
  - Irritable bowel syndrome [Unknown]
  - Infection [Unknown]
  - Scoliosis [Unknown]
  - Encephalomalacia [Unknown]
  - Arthritis [Unknown]
  - Pulmonary mass [Unknown]
  - Lung infiltration [Unknown]
  - Interstitial lung disease [Unknown]
  - Chronic obstructive pulmonary disease [Not Recovered/Not Resolved]
  - Anaemia of chronic disease [Not Recovered/Not Resolved]
  - Hypertonic bladder [Unknown]
  - Occupational exposure to toxic agent [Unknown]
  - Osteoarthritis [Unknown]
  - Vomiting [Unknown]
  - Back pain [Not Recovered/Not Resolved]
  - Asthenia [Unknown]
  - Pyrexia [Unknown]
  - Dizziness [Unknown]
  - Drug ineffective [Unknown]
  - Vertigo [Unknown]
  - Myalgia [Unknown]
  - Nausea [Not Recovered/Not Resolved]
  - Nausea [Unknown]
  - Headache [Unknown]
  - Constipation [Unknown]
  - Arthralgia [Not Recovered/Not Resolved]
  - Gastrooesophageal reflux disease [Unknown]
